FAERS Safety Report 7936419-1 (Version None)
Quarter: 2011Q4

REPORT INFORMATION
  Report Type: 
  Country: None (occurrence: None)
  Receive Date: 20111123
  Receipt Date: 20111121
  Transmission Date: 20120403
  Serious: Yes (Other)
  Sender: FDA-Public Use
  Company Number: US-PFIZER INC-2011284946

PATIENT
  Sex: Female
  Weight: 40.816 kg

DRUGS (5)
  1. KLONOPIN [Concomitant]
     Indication: ANXIETY
     Dosage: UNK
  2. METHOTREXATE [Concomitant]
     Indication: RHEUMATOID ARTHRITIS
     Dosage: UNK
  3. HUMIRA [Concomitant]
     Indication: RHEUMATOID ARTHRITIS
     Dosage: UNK
  4. ZOLOFT [Suspect]
     Indication: DEPRESSION
     Dosage: 100 MG, 1X/DAY
     Route: 048
     Dates: start: 20000101, end: 20060101
  5. SERTRALINE HYDROCHLORIDE [Suspect]
     Indication: DEPRESSION
     Dosage: 100 MG, 1X/DAY
     Route: 048
     Dates: start: 20060101, end: 20060101

REACTIONS (4)
  - COLD SWEAT [None]
  - PALPITATIONS [None]
  - HYPERHIDROSIS [None]
  - FEELING ABNORMAL [None]
